FAERS Safety Report 4404669-7 (Version None)
Quarter: 2004Q3

REPORT INFORMATION
  Report Type: 
  Country: None (occurrence: None)
  Receive Date: 20040720
  Receipt Date: 20040713
  Transmission Date: 20050211
  Serious: Yes (Death)
  Sender: FDA-Public Use
  Company Number: 04P-144-0251930-00

PATIENT
  Age: 31 Year
  Sex: Male

DRUGS (5)
  1. KALETRA [Suspect]
     Indication: HIV INFECTION
     Dosage: 3 CAPSULE, 2 IN 1 D, ORAL
     Route: 048
     Dates: start: 20011030, end: 20020606
  2. DIDANOSINE [Concomitant]
  3. STAVUDINE [Concomitant]
  4. EFAVIRENZ [Concomitant]
  5. PENTAMIDINE [Concomitant]

REACTIONS (14)
  - ABDOMINAL SEPSIS [None]
  - BACTEROIDES INFECTION [None]
  - ESCHERICHIA INFECTION [None]
  - HEPATIC CIRRHOSIS [None]
  - HEPATIC FAILURE [None]
  - LACTIC ACIDOSIS [None]
  - OESOPHAGEAL VARICES HAEMORRHAGE [None]
  - PERITONITIS BACTERIAL [None]
  - PSEUDOMONAS INFECTION [None]
  - RENAL FAILURE ACUTE [None]
  - RESPIRATORY DISTRESS [None]
  - STREPTOCOCCAL INFECTION [None]
  - THERAPY NON-RESPONDER [None]
  - VARICES OESOPHAGEAL [None]
